FAERS Safety Report 10778389 (Version 1)
Quarter: 2015Q1

REPORT INFORMATION
  Report Type: Spontaneous
  Country: IT (occurrence: IT)
  Receive Date: 20150209
  Receipt Date: 20150209
  Transmission Date: 20150721
  Serious: Yes (Hospitalization)
  Sender: FDA-Public Use
  Company Number: IT-BRISTOL-MYERS SQUIBB COMPANY-BMS-2015-004906

PATIENT

DRUGS (2)
  1. YERVOY [Suspect]
     Active Substance: IPILIMUMAB
     Indication: METASTATIC MALIGNANT MELANOMA
     Dosage: UNK
     Route: 065
     Dates: start: 20141212
  2. YERVOY [Suspect]
     Active Substance: IPILIMUMAB
     Indication: HEPATITIS

REACTIONS (3)
  - Blood bilirubin increased [Unknown]
  - Transaminases increased [Unknown]
  - Viral load [Unknown]
